FAERS Safety Report 20686573 (Version 1)
Quarter: 2022Q2

REPORT INFORMATION
  Report Type: Spontaneous
  Country: US (occurrence: US)
  Receive Date: 20220407
  Receipt Date: 20220407
  Transmission Date: 20220721
  Serious: No
  Sender: FDA-Public Use
  Company Number: US-SA-SAC20220401000802

PATIENT
  Age: 64 Year
  Sex: Female

DRUGS (1)
  1. LEMTRADA [Suspect]
     Active Substance: ALEMTUZUMAB
     Indication: Product use in unapproved indication
     Dosage: UNK

REACTIONS (2)
  - Thyroid disorder [Unknown]
  - Product use in unapproved indication [Unknown]
